FAERS Safety Report 11428716 (Version 1)
Quarter: 2015Q3

REPORT INFORMATION
  Report Type: Spontaneous
  Country: US (occurrence: None)
  Receive Date: 20150827
  Receipt Date: 20150827
  Transmission Date: 20151125
  Serious: Yes (Other)
  Sender: FDA-Public Use
  Company Number: None

PATIENT
  Sex: Female

DRUGS (1)
  1. REMICADE [Suspect]
     Active Substance: INFLIXIMAB
     Dosage: 100MG 5MG/KG Q8 WEEKS INTRAVENOUSLY
     Route: 042
     Dates: start: 20150415

REACTIONS (4)
  - Chest discomfort [None]
  - Anxiety [None]
  - Hypersensitivity [None]
  - Flushing [None]
